FAERS Safety Report 10479769 (Version 1)
Quarter: 2014Q3

REPORT INFORMATION
  Report Type: Spontaneous
  Country: US (occurrence: US)
  Receive Date: 20140928
  Receipt Date: 20140928
  Transmission Date: 20150326
  Serious: No
  Sender: FDA-Public Use
  Company Number: US-ASTRAZENECA-2014SE67397

PATIENT
  Age: 59 Year
  Sex: Female

DRUGS (4)
  1. TOPROL XL [Suspect]
     Active Substance: METOPROLOL SUCCINATE
     Indication: HYPERTENSION
     Route: 048
  2. TOPROL XL [Suspect]
     Active Substance: METOPROLOL SUCCINATE
     Indication: VENTRICULAR EXTRASYSTOLES
     Dosage: METOPROLOL SUCCINATE ER MANUFACTURED BY WATSON 25MG DAILY
     Route: 048
  3. TOPROL XL [Suspect]
     Active Substance: METOPROLOL SUCCINATE
     Indication: VENTRICULAR EXTRASYSTOLES
     Route: 048
  4. TOPROL XL [Suspect]
     Active Substance: METOPROLOL SUCCINATE
     Indication: HYPERTENSION
     Dosage: METOPROLOL SUCCINATE ER MANUFACTURED BY WATSON 25MG DAILY
     Route: 048

REACTIONS (6)
  - Discomfort [Unknown]
  - Cardiac disorder [Unknown]
  - Heart rate decreased [Unknown]
  - Chest discomfort [Unknown]
  - Joint swelling [Unknown]
  - Dizziness [Unknown]

NARRATIVE: CASE EVENT DATE: 201409
